FAERS Safety Report 20812449 (Version 1)
Quarter: 2022Q2

REPORT INFORMATION
  Report Type: Report from Study
  Country: CO (occurrence: CO)
  Receive Date: 20220511
  Receipt Date: 20220511
  Transmission Date: 20220721
  Serious: Yes (Disabling, Other)
  Sender: FDA-Public Use
  Company Number: CO-ABBVIE-22K-036-4385099-00

PATIENT
  Sex: Female
  Weight: 74 kg

DRUGS (2)
  1. HUMIRA [Suspect]
     Active Substance: ADALIMUMAB
     Indication: Ankylosing spondylitis
     Route: 058
  2. HUMIRA [Suspect]
     Active Substance: ADALIMUMAB
     Indication: Ankylosing spondylitis
     Route: 058

REACTIONS (9)
  - Tooth disorder [Recovering/Resolving]
  - Malocclusion [Recovering/Resolving]
  - Tooth injury [Unknown]
  - Gingival swelling [Recovering/Resolving]
  - Haemorrhage [Recovering/Resolving]
  - Dermatitis [Recovering/Resolving]
  - Pulpitis dental [Recovering/Resolving]
  - Toothache [Recovering/Resolving]
  - Oral pain [Recovering/Resolving]

NARRATIVE: CASE EVENT DATE: 20220101
